FAERS Safety Report 9084474 (Version 1)
Quarter: 2013Q1

REPORT INFORMATION
  Report Type: Spontaneous
  Country: US (occurrence: US)
  Receive Date: 20130131
  Receipt Date: 20130131
  Transmission Date: 20140127
  Serious: Yes (Other)
  Sender: FDA-Public Use
  Company Number: US-TEVA-383021USA

PATIENT
  Sex: Female
  Weight: 77.18 kg

DRUGS (7)
  1. COPAXONE [Suspect]
     Indication: MULTIPLE SCLEROSIS
     Dosage: 20 MILLIGRAM DAILY;
     Route: 058
     Dates: start: 2008
  2. BACLOFEN [Concomitant]
     Dosage: 50 MILLIGRAM DAILY;
     Route: 048
  3. KLONOPIN [Concomitant]
     Dosage: HS
     Route: 048
  4. TESTOSTERONE [Concomitant]
  5. VIVELLE-DOT [Concomitant]
     Dosage: .25 MILLIGRAM DAILY;
     Route: 061
  6. NEURONTIN [Concomitant]
     Dosage: 1200 MILLIGRAM DAILY;
     Route: 048
  7. VITAMIN D [Concomitant]
     Route: 048

REACTIONS (9)
  - Secondary progressive multiple sclerosis [Not Recovered/Not Resolved]
  - Cognitive disorder [Not Recovered/Not Resolved]
  - Injection site reaction [Not Recovered/Not Resolved]
  - Fatigue [Not Recovered/Not Resolved]
  - Hypoaesthesia [Not Recovered/Not Resolved]
  - Bladder disorder [Not Recovered/Not Resolved]
  - Diplopia [Not Recovered/Not Resolved]
  - Vision blurred [Not Recovered/Not Resolved]
  - Off label use [Unknown]
